FAERS Safety Report 5436719-3 (Version None)
Quarter: 2007Q3

REPORT INFORMATION
  Report Type: 
  Country: None (occurrence: None)
  Receive Date: 20070831
  Receipt Date: 20070821
  Transmission Date: 20080115
  Serious: Yes (Hospitalization)
  Sender: FDA-Public Use
  Company Number: US-JNJFOC-20070806071

PATIENT
  Age: 8 Month
  Sex: Female

DRUGS (1)
  1. FENTANYL [Suspect]
     Indication: DRUG USE FOR UNKNOWN INDICATION
     Route: 062

REACTIONS (4)
  - ACCIDENTAL EXPOSURE [None]
  - CONVULSION [None]
  - MIOSIS [None]
  - UNRESPONSIVE TO STIMULI [None]
